FAERS Safety Report 18447014 (Version 1)
Quarter: 2020Q4

REPORT INFORMATION
  Report Type: Spontaneous
  Country: US (occurrence: US)
  Receive Date: 20201030
  Receipt Date: 20201030
  Transmission Date: 20210114
  Serious: Yes (Hospitalization, Disabling, Other)
  Sender: FDA-Public Use
  Company Number: US-PURDUE-USA-2020-0171747

PATIENT
  Sex: Male

DRUGS (3)
  1. OXYCODONE HCL TABLETS (91-490) [Suspect]
     Active Substance: OXYCODONE HYDROCHLORIDE
     Indication: PRODUCT USED FOR UNKNOWN INDICATION
     Route: 048
  2. OXYIR [Suspect]
     Active Substance: OXYCODONE HYDROCHLORIDE
     Indication: PRODUCT USED FOR UNKNOWN INDICATION
     Route: 065
  3. OXYCONTIN [Suspect]
     Active Substance: OXYCODONE HYDROCHLORIDE
     Indication: PAIN
     Route: 048

REACTIONS (9)
  - Unevaluable event [Unknown]
  - Drug dependence [Unknown]
  - Abdominal pain [Unknown]
  - Hepatic cyst [Unknown]
  - Cholecystectomy [Unknown]
  - General physical health deterioration [Unknown]
  - Disability [Unknown]
  - Renal cyst [Unknown]
  - Appendicectomy [Unknown]
